FAERS Safety Report 10400846 (Version 1)
Quarter: 2014Q3

REPORT INFORMATION
  Report Type: Spontaneous
  Country: US (occurrence: US)
  Receive Date: 20140821
  Receipt Date: 20140821
  Transmission Date: 20150326
  Serious: No
  Sender: FDA-Public Use
  Company Number: US-ASTRAZENECA-2014SE18315

PATIENT
  Age: 59 Year
  Sex: Female
  Weight: 51.3 kg

DRUGS (5)
  1. FIORICET WITH CODEINE [Concomitant]
     Active Substance: ACETAMINOPHEN\BUTALBITAL\CAFFEINE\CODEINE PHOSPHATE
     Indication: RESPIRATORY DISORDER
     Dosage: UNKNOWN DAILY
     Route: 048
  2. PRISTIQUE [Concomitant]
     Indication: ANTIDEPRESSANT THERAPY
     Route: 048
  3. SYMBICORT [Suspect]
     Active Substance: BUDESONIDE\FORMOTEROL FUMARATE DIHYDRATE
     Dosage: 1 PUFF OF SYMBICORT 2 TIMES A DAY
     Route: 055
     Dates: start: 201402
  4. SYMBICORT [Suspect]
     Active Substance: BUDESONIDE\FORMOTEROL FUMARATE DIHYDRATE
     Dosage: OCCASION THAT SHE WILL USE TWO, UNKNOWN
     Route: 055
  5. IMITREX NEEDLES [Concomitant]
     Dosage: UNKNOWN PRN
     Route: 058

REACTIONS (4)
  - Weight abnormal [Recovered/Resolved]
  - Dyspnoea [Unknown]
  - Intentional product misuse [Unknown]
  - Influenza [Unknown]

NARRATIVE: CASE EVENT DATE: 2014
